FAERS Safety Report 6103404-4 (Version None)
Quarter: 2009Q1

REPORT INFORMATION
  Report Type: 
  Country: None (occurrence: None)
  Receive Date: 20090305
  Receipt Date: 20090220
  Transmission Date: 20090719
  Serious: Yes (Death)
  Sender: FDA-Public Use
  Company Number: PHBS2009US00873

PATIENT

DRUGS (5)
  1. CYCLOSPORINE [Suspect]
     Indication: GRAFT VERSUS HOST DISEASE
  2. MELPHALAN [Concomitant]
     Dosage: 140 MG/M2
  3. ORTHOCLONE OKT3 [Concomitant]
     Dosage: UNK
  4. FLUDARABINE PHOSPHATE [Concomitant]
     Dosage: 200 MG/M2
  5. THIOTEPA [Concomitant]
     Dosage: 10 MG/KG

REACTIONS (2)
  - ENGRAFT FAILURE [None]
  - PNEUMONIA CYTOMEGALOVIRAL [None]
